FAERS Safety Report 5324995-7 (Version None)
Quarter: 2007Q2

REPORT INFORMATION
  Report Type: 
  Country: None (occurrence: None)
  Receive Date: 20070515
  Receipt Date: 20070502
  Transmission Date: 20071010
  Serious: Yes (Hospitalization)
  Sender: FDA-Public Use
  Company Number: US-AMGEN-US194233

PATIENT
  Sex: Female

DRUGS (3)
  1. ENBREL [Suspect]
     Indication: PSORIASIS
     Route: 058
     Dates: start: 20050927, end: 20060720
  2. ENBREL [Suspect]
     Indication: PSORIATIC ARTHROPATHY
  3. PLAQUENIL [Concomitant]
     Route: 065
     Dates: start: 20030101

REACTIONS (2)
  - MEDICAL DEVICE REMOVAL [None]
  - POSTOPERATIVE WOUND INFECTION [None]
